FAERS Safety Report 5290187-3 (Version None)
Quarter: 2007Q2

REPORT INFORMATION
  Report Type: 
  Country: None (occurrence: None)
  Receive Date: 20070402
  Receipt Date: 20070321
  Transmission Date: 20071010
  Serious: Yes (Hospitalization)
  Sender: FDA-Public Use
  Company Number: TPA2007A00559

PATIENT
  Age: 45 Year
  Sex: Male
  Weight: 128.368 kg

DRUGS (10)
  1. ACTOS [Suspect]
     Indication: DIABETES MELLITUS NON-INSULIN-DEPENDENT
     Dosage: 45 MG, 1 IN 1 D, PER ORAL, 30 MG, 1 IN 1 D, PER ORAL
     Route: 048
     Dates: start: 20020101
  2. GLUCOPHAGE [Concomitant]
  3. GLYBURIDE [Concomitant]
  4. TRICOR [Concomitant]
  5. ACCUPRIL [Concomitant]
  6. AMITRIPTYLINE HCL [Concomitant]
  7. PROTONIX [Concomitant]
  8. BACLOFEN (BACLOFEN) (10 MILLIGRAM) [Concomitant]
  9. SEROQUEL [Concomitant]
  10. COPAXONE [Concomitant]

REACTIONS (6)
  - FALL [None]
  - GAIT DISTURBANCE [None]
  - HEMIPLEGIA [None]
  - MULTIPLE SCLEROSIS [None]
  - PAIN [None]
  - WEIGHT INCREASED [None]
